FAERS Safety Report 8303861 (Version 3)
Quarter: 2014Q1

REPORT INFORMATION
  Report Type: Spontaneous
  Country: US (occurrence: US)
  Receive Date: 20111221
  Receipt Date: 20140121
  Transmission Date: 20141002
  Serious: Yes (Hospitalization)
  Sender: FDA-Public Use
  Company Number: US-BAYER-2011-119995

PATIENT
  Age: 23 Year
  Sex: Female
  Weight: 61.22 kg

DRUGS (6)
  1. YAZ [Suspect]
     Dosage: UNK
     Dates: start: 200604, end: 200605
  2. YASMIN [Suspect]
     Dosage: UNK
     Dates: start: 200604, end: 200605
  3. IBUPROFEN [Concomitant]
     Dosage: UNK
     Dates: start: 2004
  4. VITAMIN C [Concomitant]
     Dosage: UNK
     Dates: start: 2010
  5. ALBUTEROL [Concomitant]
     Dosage: AS NEEDED
     Dates: start: 20061211
  6. MVI [Concomitant]
     Dosage: UNK
     Dates: start: 20061211

REACTIONS (4)
  - Gallbladder injury [None]
  - Cholecystitis chronic [None]
  - Injury [None]
  - Malaise [None]
